FAERS Safety Report 13101843 (Version 7)
Quarter: 2020Q1

REPORT INFORMATION
  Report Type: Spontaneous
  Country: US (occurrence: US)
  Receive Date: 20170110
  Receipt Date: 20200210
  Transmission Date: 20200409
  Serious: No
  Sender: FDA-Public Use
  Company Number: US-PFIZER INC-2017005037

PATIENT
  Age: 63 Year
  Sex: Female

DRUGS (5)
  1. LYRICA [Suspect]
     Active Substance: PREGABALIN
     Dosage: 100 MG, 3X/DAY
  2. LYRICA [Suspect]
     Active Substance: PREGABALIN
     Dosage: 75 MG, 1X/DAY
  3. LYRICA [Suspect]
     Active Substance: PREGABALIN
     Dosage: 75 MG, 3X/DAY
  4. LYRICA [Suspect]
     Active Substance: PREGABALIN
     Indication: FIBROMYALGIA
     Dosage: 75 MG, 3X/DAY
  5. LYRICA [Suspect]
     Active Substance: PREGABALIN
     Indication: PAIN
     Dosage: 75 MG, 2X/DAY

REACTIONS (11)
  - Vomiting [Recovered/Resolved]
  - Diarrhoea [Unknown]
  - Nervousness [Recovered/Resolved]
  - Skin disorder [Recovered/Resolved]
  - Therapeutic product effect incomplete [Unknown]
  - Nausea [Unknown]
  - Withdrawal syndrome [Recovered/Resolved]
  - Intentional product use issue [Unknown]
  - Product dose omission [Unknown]
  - Pruritus [Recovered/Resolved]
  - Malaise [Unknown]

NARRATIVE: CASE EVENT DATE: 2019
